FAERS Safety Report 10374531 (Version 1)
Quarter: 2014Q1

REPORT INFORMATION
  Report Type: Spontaneous
  Country: US (occurrence: None)
  Receive Date: 20140306
  Receipt Date: 20140306
  Transmission Date: 20141002
  Serious: Yes (Other)
  Sender: FDA-Public Use
  Company Number: 163-21880-13010513

PATIENT
  Age: 70 Year
  Sex: Female
  Weight: 47.63 kg

DRUGS (4)
  1. REVLIMID (LENALIDOMIDE) (10 MILLIGRAM, CAPSULES) [Suspect]
     Indication: MYELODYSPLASTIC SYNDROME
     Dosage: 10 MG, 28 IN 28 D, PO
     Route: 048
     Dates: start: 20121112, end: 20121214
  2. EXJADE (DEFERASIROX) (TABLETS) [Suspect]
     Indication: IRON OVERLOAD
     Dosage: 2 TAB, PO
     Route: 048
     Dates: start: 20121207
  3. POTASSIUM CHLORIDE [Concomitant]
  4. BLOOD (BLOOD AND RELATED PRODUCTS) [Concomitant]

REACTIONS (3)
  - Full blood count decreased [None]
  - White blood cell count decreased [None]
  - Iron overload [None]
